FAERS Safety Report 21333172 (Version 1)
Quarter: 2022Q3

REPORT INFORMATION
  Report Type: Spontaneous
  Country: US (occurrence: US)
  Receive Date: 20220914
  Receipt Date: 20220914
  Transmission Date: 20221027
  Serious: No
  Sender: FDA-Public Use
  Company Number: US-PFIZER INC-202201151445

PATIENT
  Age: 34 Year
  Sex: Female

DRUGS (1)
  1. PAXLOVID [Suspect]
     Active Substance: NIRMATRELVIR\RITONAVIR
     Indication: COVID-19 treatment
     Dosage: UNK
     Dates: start: 20220908

REACTIONS (6)
  - Headache [Unknown]
  - Disorientation [Unknown]
  - Feeling abnormal [Unknown]
  - Head discomfort [Unknown]
  - Insomnia [Unknown]
  - Stupor [Unknown]

NARRATIVE: CASE EVENT DATE: 20220901
